FAERS Safety Report 7527683-1 (Version None)
Quarter: 2011Q2

REPORT INFORMATION
  Report Type: 
  Country: None (occurrence: None)
  Receive Date: 20110527
  Receipt Date: 20110512
  Transmission Date: 20111010
  Serious: Yes (Death, Hospitalization)
  Sender: FDA-Public Use
  Company Number: 1000021008

PATIENT
  Age: 21 Year
  Sex: Female

DRUGS (3)
  1. ESCITALOPRAM OXALATE [Suspect]
     Indication: DEPRESSION
     Dosage: 5 MG (5 MG,1 IN 1 D), ORAL
     Route: 048
     Dates: start: 20100311
  2. ESCITALOPRAM OXALATE [Suspect]
     Indication: ANXIETY
     Dosage: 5 MG (5 MG,1 IN 1 D), ORAL
     Route: 048
     Dates: start: 20100311
  3. MIRTAZAPINE [Suspect]
     Indication: DEPRESSION
     Dosage: 15 MG (15 MG,1 IN 1 D), ORAL
     Route: 048
     Dates: start: 20100311

REACTIONS (13)
  - HYPOPHAGIA [None]
  - GAMMA-GLUTAMYLTRANSFERASE INCREASED [None]
  - DEHYDRATION [None]
  - INTERNATIONAL NORMALISED RATIO INCREASED [None]
  - BLOOD CHLORIDE DECREASED [None]
  - CARDIAC ARREST [None]
  - PERICARDITIS [None]
  - BLOOD BILIRUBIN INCREASED [None]
  - BLOOD MAGNESIUM DECREASED [None]
  - BLOOD IRON DECREASED [None]
  - OLIGODIPSIA [None]
  - SERUM FERRITIN INCREASED [None]
  - HAEMOGLOBIN DECREASED [None]
